FAERS Safety Report 7654943-6 (Version None)
Quarter: 2011Q3

REPORT INFORMATION
  Report Type: 
  Country: None (occurrence: None)
  Receive Date: 20110804
  Receipt Date: 20110727
  Transmission Date: 20111222
  Serious: Yes (Death, Hospitalization, Disabling, Other)
  Sender: FDA-Public Use
  Company Number: JP-CELGENEUS-087-50794-11070496

PATIENT
  Sex: Female

DRUGS (42)
  1. VIDAZA [Suspect]
     Indication: MYELODYSPLASTIC SYNDROME
     Dosage: 37.5 MILLIGRAM/SQ. METER
     Route: 058
     Dates: start: 20110407, end: 20110413
  2. VIDAZA [Suspect]
     Dosage: 75 MILLIGRAM/SQ. METER
     Route: 058
     Dates: start: 20110503, end: 20110506
  3. RAMELTEON [Concomitant]
     Route: 041
     Dates: start: 20110407, end: 20110413
  4. LACTEC [Concomitant]
     Route: 041
     Dates: start: 20110621, end: 20110621
  5. FENTANYL [Concomitant]
     Route: 041
     Dates: start: 20110621, end: 20110621
  6. FIRSTCIN [Concomitant]
     Route: 041
     Dates: start: 20110602, end: 20110620
  7. SODIUM BICARBONATE [Concomitant]
     Route: 041
     Dates: start: 20110607, end: 20110613
  8. FAMOTIDINE [Concomitant]
     Route: 048
     Dates: start: 20110406, end: 20110621
  9. VFEND [Concomitant]
     Route: 065
     Dates: start: 20110406, end: 20110621
  10. ISONIAZID [Concomitant]
     Route: 048
     Dates: start: 20110411, end: 20110621
  11. HACHIAZULE [Concomitant]
     Route: 049
     Dates: start: 20110411
  12. LAC-B [Concomitant]
     Route: 048
     Dates: start: 20110620, end: 20110621
  13. LOPERAMIDE HCL [Concomitant]
     Route: 048
     Dates: start: 20110620, end: 20110621
  14. PROPETO [Concomitant]
     Route: 061
     Dates: start: 20110621, end: 20110621
  15. CEFTAZIDIME HYDRATE [Concomitant]
     Route: 041
     Dates: start: 20110506, end: 20110517
  16. HIRUDOID [Concomitant]
     Route: 061
     Dates: start: 20110506
  17. LASIX [Concomitant]
     Route: 041
     Dates: start: 20110406, end: 20110510
  18. MAGNESIUM SULFATE [Concomitant]
     Route: 048
     Dates: start: 20110406, end: 20110406
  19. ALDACTONE [Concomitant]
     Route: 048
     Dates: start: 20110406, end: 20110621
  20. KARY UNI [Concomitant]
     Route: 065
     Dates: start: 20110602
  21. SODIUM BICARBONATE [Concomitant]
     Route: 041
     Dates: start: 20110503, end: 20110506
  22. FUNGUARD [Concomitant]
     Route: 041
     Dates: start: 20110621, end: 20110621
  23. LOXONIN [Concomitant]
     Route: 048
     Dates: start: 20110607, end: 20110621
  24. SUMILU [Concomitant]
     Route: 061
     Dates: start: 20110410
  25. CLOBETASOL PROPIONATE [Concomitant]
     Route: 061
     Dates: start: 20110531
  26. ADONA [Concomitant]
     Route: 041
     Dates: start: 20110621, end: 20110621
  27. LOXONIN [Concomitant]
     Route: 048
     Dates: start: 20110506, end: 20110601
  28. NEOMALLERMIN-TR [Concomitant]
     Route: 048
     Dates: start: 20110527, end: 20110601
  29. HYALEIN [Concomitant]
     Route: 065
     Dates: start: 20110524
  30. CARBENIN [Concomitant]
     Route: 041
     Dates: start: 20110518, end: 20110530
  31. VIDAZA [Suspect]
     Dosage: 75 MILLIGRAM/SQ. METER
     Route: 058
     Dates: start: 20110607, end: 20110613
  32. FAMOTIDINE [Concomitant]
     Route: 041
     Dates: start: 20110621, end: 20110621
  33. RESTAMIN [Concomitant]
     Route: 061
     Dates: start: 20110605
  34. VANCOMYCIN [Concomitant]
     Route: 041
     Dates: start: 20110526, end: 20110530
  35. MEROPEN KIT [Concomitant]
     Route: 041
     Dates: start: 20110607, end: 20110613
  36. TRANSAMIN [Concomitant]
     Route: 041
     Dates: start: 20110621, end: 20110621
  37. LEVOFLOXACIN [Concomitant]
     Route: 065
     Dates: start: 20110406, end: 20110621
  38. RAMELTEON [Concomitant]
     Route: 041
     Dates: start: 20110503, end: 20110506
  39. LASIX [Concomitant]
     Route: 041
     Dates: start: 20110620, end: 20110621
  40. GRAN [Concomitant]
     Route: 041
     Dates: start: 20110621, end: 20110621
  41. SOLU-CORTEF [Concomitant]
     Route: 041
     Dates: start: 20110420, end: 20110420
  42. XYLOCAINE [Concomitant]
     Route: 061
     Dates: start: 20110416

REACTIONS (5)
  - LYMPHADENITIS [None]
  - DYSPNOEA [None]
  - DIARRHOEA [None]
  - HAEMOPTYSIS [None]
  - PNEUMONIA [None]
